FAERS Safety Report 10592080 (Version 1)
Quarter: 2014Q4

REPORT INFORMATION
  Report Type: Report from Study
  Country: AR (occurrence: AR)
  Receive Date: 20141119
  Receipt Date: 20141119
  Transmission Date: 20150529
  Serious: Yes (Hospitalization)
  Sender: FDA-Public Use
  Company Number: AR-ROCHE-1490165

PATIENT
  Age: 62 Year
  Sex: Female

DRUGS (4)
  1. TRASTUZUMAB [Suspect]
     Active Substance: TRASTUZUMAB
     Indication: APOCRINE BREAST CARCINOMA
     Dosage: DURING A YEAR
     Route: 065
     Dates: end: 201403
  2. CARBOPLATIN. [Suspect]
     Active Substance: CARBOPLATIN
     Indication: APOCRINE BREAST CARCINOMA
     Dosage: X 6 DURING A YEAR
     Route: 065
     Dates: end: 201403
  3. DOCETAXEL. [Concomitant]
     Active Substance: DOCETAXEL
     Indication: APOCRINE BREAST CARCINOMA
     Dosage: X 6 DURING A YEAR
     Route: 065
     Dates: end: 201403
  4. ANASTROZOLE. [Concomitant]
     Active Substance: ANASTROZOLE
     Indication: APOCRINE BREAST CARCINOMA
     Route: 065

REACTIONS (7)
  - Anaemia [Unknown]
  - Leukocytosis [Unknown]
  - Procedural haemorrhage [Unknown]
  - Wound haematoma [Unknown]
  - Invasive lobular breast carcinoma [Unknown]
  - Metastatic neoplasm [Unknown]
  - Ascites [Unknown]

NARRATIVE: CASE EVENT DATE: 201407
